FAERS Safety Report 16890065 (Version 1)
Quarter: 2019Q4

REPORT INFORMATION
  Report Type: Spontaneous
  Country: DE (occurrence: DE)
  Receive Date: 20191007
  Receipt Date: 20191007
  Transmission Date: 20200122
  Serious: Yes (Congenital Anomaly, Other)
  Sender: FDA-Public Use
  Company Number: DE-JNJFOC-20190932270

PATIENT
  Sex: Female
  Weight: 3.4 kg

DRUGS (6)
  1. AZATHIOPRINE. [Concomitant]
     Active Substance: AZATHIOPRINE
     Indication: COLITIS ULCERATIVE
     Dosage: 0 - 3.3. GESTATIONAL WEEK
     Route: 064
     Dates: start: 20180422, end: 20180516
  2. FOLSAURE [Concomitant]
     Active Substance: FOLIC ACID
     Indication: PROPHYLAXIS
     Route: 064
  3. MAYRA [Concomitant]
     Indication: ORAL CONTRACEPTION
     Dosage: 0.03 [MG/D ] / 2 [MG/D ]? 0. - 5. GESTATIONAL WEEK
     Route: 064
  4. PREDNISOLONE. [Concomitant]
     Active Substance: PREDNISOLONE
     Indication: COLITIS ULCERATIVE
     Dosage: 33.6. - 36.6. GESTATIONAL WEEK
     Route: 064
  5. SALOFALK [Concomitant]
     Indication: COLITIS ULCERATIVE
     Dosage: 31.6. - 35.2. GESTATIONAL WEEK
     Route: 064
  6. REMICADE [Suspect]
     Active Substance: INFLIXIMAB
     Indication: COLITIS ULCERATIVE
     Dosage: 27. GESTATIONAL WEEK
     Route: 064

REACTIONS (4)
  - Otitis media [Recovered/Resolved]
  - Respiratory syncytial virus infection [Recovered/Resolved]
  - Atrial septal defect [Unknown]
  - Foetal exposure during pregnancy [Recovered/Resolved]
